FAERS Safety Report 5390225-3 (Version None)
Quarter: 2007Q3

REPORT INFORMATION
  Report Type: 
  Country: None (occurrence: None)
  Receive Date: 20070718
  Receipt Date: 20070710
  Transmission Date: 20080115
  Serious: Yes (Other)
  Sender: FDA-Public Use
  Company Number: US-ASTRAZENECA-2007UW16185

PATIENT
  Age: 23 Year
  Sex: Female

DRUGS (6)
  1. SEROQUEL [Suspect]
     Route: 048
  2. ALCOHOL [Suspect]
  3. NYQUIL [Suspect]
  4. CELEXA [Concomitant]
  5. TEGRETOL [Concomitant]
  6. LAMICTAL [Concomitant]

REACTIONS (2)
  - COMA [None]
  - RESPIRATORY DISTRESS [None]
